FAERS Safety Report 8571316-2 (Version None)
Quarter: 2012Q3

REPORT INFORMATION
  Report Type: 
  Country: None (occurrence: None)
  Receive Date: 20120806
  Receipt Date: 20120725
  Transmission Date: 20120928
  Serious: Yes (Hospitalization)
  Sender: FDA-Public Use
  Company Number: US-BAYER-200941475NA

PATIENT
  Age: 45 Year
  Sex: Female
  Weight: 72 kg

DRUGS (5)
  1. YAZ [Suspect]
     Dosage: SAMPLES RECEIVED: 1 BOX ON 11-SEP-2008.
     Route: 048
     Dates: start: 20080911, end: 20091028
  2. AMOXICILLIN [Concomitant]
     Dates: start: 20090308
  3. AMOXICILLIN [Concomitant]
     Dates: start: 20090228
  4. IBUPROFEN [Concomitant]
     Dosage: TABLET D
     Dates: start: 20090228
  5. DIURETICS [Concomitant]

REACTIONS (9)
  - CEREBROVASCULAR ACCIDENT [None]
  - MONOPLEGIA [None]
  - FEELING COLD [None]
  - TREMOR [None]
  - SPEECH DISORDER [None]
  - PARAESTHESIA [None]
  - HEADACHE [None]
  - HYPOAESTHESIA [None]
  - MEMORY IMPAIRMENT [None]
